FAERS Safety Report 8270640-0 (Version None)
Quarter: 2012Q2

REPORT INFORMATION
  Report Type: 
  Country: None (occurrence: None)
  Receive Date: 20120410
  Receipt Date: 20120402
  Transmission Date: 20120825
  Serious: Yes (Hospitalization)
  Sender: FDA-Public Use
  Company Number: US-BAYER-2011-069918

PATIENT
  Age: 41 Year
  Sex: Female
  Weight: 74.83 kg

DRUGS (3)
  1. YASMIN [Suspect]
     Dosage: UNK
     Dates: start: 20070401, end: 20100101
  2. YAZ [Suspect]
     Dosage: UNK
     Dates: start: 20070401, end: 20100101
  3. PROCARDIA [Concomitant]
     Dosage: UNK
     Route: 048
     Dates: start: 20070101, end: 20100101

REACTIONS (7)
  - ANHEDONIA [None]
  - EMOTIONAL DISTRESS [None]
  - ANXIETY [None]
  - CHOLECYSTITIS ACUTE [None]
  - PAIN [None]
  - CHOLECYSTECTOMY [None]
  - INJURY [None]
